FAERS Safety Report 8159003-6 (Version None)
Quarter: 2012Q1

REPORT INFORMATION
  Report Type: 
  Country: None (occurrence: None)
  Receive Date: 20120217
  Receipt Date: 20120206
  Transmission Date: 20120608
  Serious: Yes (Hospitalization)
  Sender: FDA-Public Use
  Company Number: 2012MA001725

PATIENT
  Age: 21 Year
  Sex: Female

DRUGS (5)
  1. HALOPERIDOL [Concomitant]
  2. DILANTIN [Concomitant]
  3. OLANZAPINE [Concomitant]
  4. CLONAZEPAM [Suspect]
     Indication: CATATONIA
  5. QUETIAPINE [Concomitant]

REACTIONS (8)
  - HALLUCINATIONS, MIXED [None]
  - PARANOIA [None]
  - DELUSION [None]
  - TREATMENT NONCOMPLIANCE [None]
  - AGITATION [None]
  - SOCIAL AVOIDANT BEHAVIOUR [None]
  - CATATONIA [None]
  - ANXIETY [None]
